FAERS Safety Report 21419747 (Version 2)
Quarter: 2022Q4

REPORT INFORMATION
  Report Type: Report from Study
  Country: US (occurrence: US)
  Receive Date: 20221006
  Receipt Date: 20221220
  Transmission Date: 20230113
  Serious: Yes (Hospitalization)
  Sender: FDA-Public Use
  Company Number: US-ABBVIE-22K-163-4413292-00

PATIENT
  Age: 19 Year
  Sex: Female

DRUGS (4)
  1. HUMIRA [Suspect]
     Active Substance: ADALIMUMAB
     Indication: Colitis ulcerative
     Dosage: CITRATE FREE, FORM STRENGTH :40 MILLIGRAM
     Route: 058
     Dates: start: 20211215
  2. HUMIRA [Suspect]
     Active Substance: ADALIMUMAB
     Indication: Uveitis
     Dosage: CITRATE FREE, FORM STRENGTH :40 MILLIGRAM
     Route: 058
  3. MODERNA COVID-19 VACCINE [Concomitant]
     Active Substance: ELASOMERAN
     Indication: COVID-19 immunisation
     Dosage: FIRST DOSE
     Route: 030
     Dates: start: 20211101, end: 20211101
  4. MODERNA COVID-19 VACCINE [Concomitant]
     Active Substance: ELASOMERAN
     Indication: COVID-19 immunisation
     Dosage: SECOND DOSE
     Route: 030
     Dates: start: 20220101, end: 20220101

REACTIONS (11)
  - Toxicity to various agents [Recovered/Resolved]
  - Fatigue [Unknown]
  - Injection site swelling [Unknown]
  - Stress at work [Unknown]
  - Injection site urticaria [Recovered/Resolved]
  - Arthralgia [Unknown]
  - Insomnia [Unknown]
  - Injection site pruritus [Recovered/Resolved]
  - Injection site erythema [Unknown]
  - Injection site warmth [Recovered/Resolved]
  - Condition aggravated [Recovered/Resolved]

NARRATIVE: CASE EVENT DATE: 20220901
